FAERS Safety Report 21647115 (Version 2)
Quarter: 2022Q4

REPORT INFORMATION
  Report Type: Report from Study
  Country: NL (occurrence: NL)
  Receive Date: 20221127
  Receipt Date: 20221130
  Transmission Date: 20230113
  Serious: Yes (Other)
  Sender: FDA-Public Use
  Company Number: NL-ABBVIE-4215064

PATIENT
  Sex: Female
  Weight: 83 kg

DRUGS (4)
  1. CARBIDOPA\LEVODOPA [Suspect]
     Active Substance: CARBIDOPA\LEVODOPA
     Indication: Parkinson^s disease
     Dosage: MD 13.5 ML; CD 3.0 ML/H; ED 1.0 ML?DURATION TEXT: REMAINS AT 16 HOURS
     Route: 050
     Dates: end: 2022
  2. CARBIDOPA\LEVODOPA [Suspect]
     Active Substance: CARBIDOPA\LEVODOPA
     Dosage: DURATION TEXT: REMAINS AT 16 HOURS
     Route: 050
     Dates: start: 20190212
  3. RIVASTIGMINE [Concomitant]
     Active Substance: RIVASTIGMINE
     Indication: Product used for unknown indication
  4. CLOZAPINE [Concomitant]
     Active Substance: CLOZAPINE
     Indication: Product used for unknown indication

REACTIONS (4)
  - Hospice care [Not Recovered/Not Resolved]
  - Palliative care [Not Recovered/Not Resolved]
  - Wound infection [Not Recovered/Not Resolved]
  - General physical health deterioration [Not Recovered/Not Resolved]
